FAERS Safety Report 8128463-9 (Version None)
Quarter: 2012Q1

REPORT INFORMATION
  Report Type: 
  Country: None (occurrence: None)
  Receive Date: 20120210
  Receipt Date: 20120131
  Transmission Date: 20120608
  Serious: Yes (Hospitalization, Other)
  Sender: FDA-Public Use
  Company Number: FR-JNJFOC-20120204804

PATIENT
  Age: 30 Year
  Sex: Female

DRUGS (24)
  1. IFOSFAMIDE [Suspect]
     Route: 042
  2. CISPLATIN [Concomitant]
     Indication: BONE SARCOMA
     Route: 065
  3. NEUPOGEN [Concomitant]
     Route: 065
  4. IFOSFAMIDE [Suspect]
     Route: 042
  5. IFOSFAMIDE [Suspect]
     Route: 042
  6. CISPLATIN [Concomitant]
     Route: 065
  7. ETOPOSIDE [Concomitant]
     Indication: BONE SARCOMA
     Route: 065
  8. ETOPOSIDE [Concomitant]
     Route: 065
  9. IFOSFAMIDE [Suspect]
     Route: 042
  10. NEUPOGEN [Concomitant]
     Route: 065
  11. IFOSFAMIDE [Suspect]
     Route: 042
  12. ONDANSETRON [Concomitant]
     Indication: PROPHYLAXIS OF NAUSEA AND VOMITING
     Route: 065
  13. NEUPOGEN [Concomitant]
     Indication: PALLIATIVE CARE
     Route: 065
  14. DOXORUBICIN HCL [Suspect]
     Indication: BONE SARCOMA
     Route: 040
  15. DOXORUBICIN HCL [Suspect]
     Dosage: CYCLE 1
     Route: 040
  16. IFOSFAMIDE [Suspect]
     Dosage: CYCLE 1
     Route: 042
  17. METOCLOPRAMIDE [Concomitant]
     Route: 042
  18. DOXORUBICIN HCL [Suspect]
     Dosage: CYCLE 2
     Route: 040
  19. DOXORUBICIN HCL [Suspect]
     Route: 040
  20. ETOPOSIDE [Concomitant]
     Route: 065
  21. IFOSFAMIDE [Suspect]
     Indication: BONE SARCOMA
     Dosage: CYCLE 2
     Route: 042
  22. METOCLOPRAMIDE [Concomitant]
     Indication: PROPHYLAXIS OF NAUSEA AND VOMITING
     Route: 042
  23. NEUPOGEN [Concomitant]
     Route: 065
  24. NEUPOGEN [Concomitant]
     Route: 065

REACTIONS (4)
  - NEUTROPENIA [None]
  - ALOPECIA [None]
  - PREMATURE DELIVERY [None]
  - MATERNAL EXPOSURE DURING PREGNANCY [None]
